FAERS Safety Report 5945504-5 (Version None)
Quarter: 2008Q4

REPORT INFORMATION
  Report Type: 
  Country: None (occurrence: None)
  Receive Date: 20081105
  Receipt Date: 20081020
  Transmission Date: 20090506
  Serious: Yes (Hospitalization)
  Sender: FDA-Public Use
  Company Number: 8038558

PATIENT
  Age: 17 Year
  Sex: Female

DRUGS (3)
  1. VITAMIN D [Suspect]
     Indication: OSTEOPOROSIS
  2. CALCIUM [Suspect]
  3. STEROID [Concomitant]

REACTIONS (3)
  - HYPERCALCAEMIA [None]
  - INTENTIONAL OVERDOSE [None]
  - NEPHROCALCINOSIS [None]
